FAERS Safety Report 24912634 (Version 1)
Quarter: 2025Q1

REPORT INFORMATION
  Report Type: Spontaneous
  Country: JP (occurrence: JP)
  Receive Date: 20250131
  Receipt Date: 20250131
  Transmission Date: 20250409
  Serious: Yes (Hospitalization, Disabling)
  Sender: EISAI
  Company Number: JP-Eisai Medical Research-EC-2022-114811

PATIENT
  Age: 74 Year
  Sex: Female
  Weight: 46 kg

DRUGS (17)
  1. LENVIMA [Suspect]
     Active Substance: LENVATINIB
     Indication: Endometrial cancer
     Route: 048
     Dates: start: 20220208, end: 20220307
  2. LENVIMA [Suspect]
     Active Substance: LENVATINIB
     Route: 048
     Dates: start: 20220308, end: 20220321
  3. LENVIMA [Suspect]
     Active Substance: LENVATINIB
     Route: 048
     Dates: start: 20220322, end: 20220411
  4. LENVIMA [Suspect]
     Active Substance: LENVATINIB
     Dosage: 4 DAYS ON/3 DAYS OFF REGIMEN
     Route: 048
     Dates: start: 20220412, end: 20220426
  5. KEYTRUDA [Suspect]
     Active Substance: PEMBROLIZUMAB
     Indication: Endometrial cancer
     Route: 041
     Dates: start: 20220208, end: 20220412
  6. AMLODIPINE [Concomitant]
     Active Substance: AMLODIPINE BESYLATE
     Indication: Hypertension
     Dosage: DOSE UNKNOWN
     Route: 065
  7. LEVOTHYROXINE [Concomitant]
     Active Substance: LEVOTHYROXINE
     Indication: Hypothyroidism
     Dosage: AFTER BREAKFAST
     Route: 048
     Dates: start: 20220301, end: 20220321
  8. LEVOTHYROXINE [Concomitant]
     Active Substance: LEVOTHYROXINE
     Dosage: AFTER BREAKFAST
     Route: 048
     Dates: start: 20220322, end: 20220521
  9. TSUMURA JUZENTAIHOTO EXTRACT GRANULES [Concomitant]
     Indication: Product used for unknown indication
     Dosage: BEFORE EACH MEAL
     Route: 048
     Dates: start: 20220207, end: 20220501
  10. HERBALS [Concomitant]
     Active Substance: HERBALS
     Indication: Product used for unknown indication
     Dosage: BEFORE EACH MEAL
     Route: 048
     Dates: start: 20211008, end: 20220517
  11. FAMOTIDINE [Concomitant]
     Active Substance: FAMOTIDINE
     Indication: Product used for unknown indication
     Dosage: AFTER BREAKFAST AND DINNER
     Route: 048
     Dates: start: 20211019, end: 20220517
  12. DECADRON [Concomitant]
     Active Substance: DEXAMETHASONE
     Indication: Product used for unknown indication
     Dosage: AFTER BREAKFAST AND DINNER
     Route: 048
     Dates: start: 20220419, end: 20220517
  13. FEXOFENADINE HYDROCHLORIDE [Concomitant]
     Active Substance: FEXOFENADINE HYDROCHLORIDE
     Indication: Rash erythematous
     Dosage: AFTER BREAKFAST AND DINNER
     Route: 048
     Dates: start: 20220330, end: 20220517
  14. FEXOFENADINE HYDROCHLORIDE [Concomitant]
     Active Substance: FEXOFENADINE HYDROCHLORIDE
     Indication: Palmar-plantar erythrodysaesthesia syndrome
  15. CALONAL [Concomitant]
     Active Substance: ACETAMINOPHEN
     Indication: Periodontitis
     Dosage: AFTER EACH MEAL
     Route: 048
     Dates: start: 20220322, end: 20220517
  16. REBAMIPIDE [Concomitant]
     Active Substance: REBAMIPIDE
     Indication: Product used for unknown indication
     Dosage: AFTER EACH MEAL
     Route: 048
     Dates: start: 20211019, end: 20220501
  17. AZITHROMYCIN DIHYDRATE [Concomitant]
     Active Substance: AZITHROMYCIN DIHYDRATE
     Indication: Periodontitis
     Dosage: AFTER EACH MEAL
     Route: 048
     Dates: start: 20220330, end: 20220421

REACTIONS (1)
  - Female genital tract fistula [Not Recovered/Not Resolved]

NARRATIVE: CASE EVENT DATE: 20220424
